FAERS Safety Report 4337997-4 (Version None)
Quarter: 2004Q2

REPORT INFORMATION
  Report Type: 
  Country: None (occurrence: None)
  Receive Date: 20040408
  Receipt Date: 20040329
  Transmission Date: 20050107
  Serious: Yes (Other)
  Sender: FDA-Public Use
  Company Number: 2004022117

PATIENT
  Age: 64 Year
  Sex: Male

DRUGS (6)
  1. NORVASC [Suspect]
     Indication: ILL-DEFINED DISORDER
     Dosage: ORAL
     Route: 048
     Dates: start: 20040301, end: 20040301
  2. FAMOTIDINE [Suspect]
     Indication: ILL-DEFINED DISORDER
     Dates: start: 20040301, end: 20040301
  3. NICARDIPINE HCL [Concomitant]
  4. PHENYTOIN [Concomitant]
  5. SOLITA-T1 INJECTION (GLUCOSE, SODIUM CHLORIDE, SODIUM LACTATE) [Concomitant]
  6. GLYCEOL (FRUCTOSE, GLYCEROL) [Concomitant]

REACTIONS (1)
  - BLOOD CREATININE INCREASED [None]
